FAERS Safety Report 7995261-6 (Version None)
Quarter: 2011Q4

REPORT INFORMATION
  Report Type: 
  Country: None (occurrence: None)
  Receive Date: 20111220
  Receipt Date: 20111220
  Transmission Date: 20120403
  Serious: Yes (Other)
  Sender: FDA-Public Use
  Company Number: None

PATIENT
  Sex: Female
  Weight: 86.182 kg

DRUGS (2)
  1. CIPROFLOXACIN [Suspect]
     Indication: URINARY TRACT INFECTION
     Route: 048
     Dates: start: 20090603, end: 20090608
  2. CIPROFLOXACIN [Concomitant]
     Route: 048
     Dates: start: 20090730, end: 20090805

REACTIONS (1)
  - NEUROPATHY PERIPHERAL [None]
